FAERS Safety Report 8789492 (Version 1)
Quarter: 2012Q4

REPORT INFORMATION
  Report Type: Spontaneous
  Country: US (occurrence: None)
  Receive Date: 20120910
  Receipt Date: 20120910
  Transmission Date: 20130627
  Serious: Yes (Other)
  Sender: FDA-Public Use
  Company Number: None

PATIENT
  Age: 39 Year
  Weight: 122.9 kg

DRUGS (4)
  1. VANCOMYCIN [Suspect]
     Route: 042
  2. ZOSYN [Suspect]
  3. LISINOPRIL [Suspect]
  4. PRAVASTATIN [Suspect]

REACTIONS (1)
  - Blood creatinine increased [None]
